FAERS Safety Report 8372195 (Version 6)
Quarter: 2012Q4

REPORT INFORMATION
  Report Type: 
  Country: US (occurrence: US)
  Receive Date: 20120131
  Receipt Date: 20120917
  Transmission Date: 20130627
  Serious: Yes (Other)
  Sender: FDA-Public Use
  Company Number: US-PFIZER INC-2012020364

PATIENT
  Age: 59 Year
  Sex: Female
  Weight: 85.26 kg

DRUGS (8)
  1. LYRICA [Suspect]
     Indication: FIBROMYALGIA
     Dosage: 75 mg, 2x/day
     Dates: start: 20120121
  2. LYRICA [Suspect]
     Dosage: 150 mg, 2x/day
  3. LASIX [Concomitant]
     Indication: LYMPHATIC DISORDER
     Dosage: 80mg (two 40mg) in the morning and 40mg in the afternoon
  4. POTASSIUM CHLORIDE [Concomitant]
     Indication: LYMPHATIC DISORDER
     Dosage: 8 mEq, daily
  5. SPIRONOLACTONE [Concomitant]
     Indication: LYMPHATIC DISORDER
     Dosage: 100 mg, daily (2 tablets in the morning)
  6. PRILOSEC [Concomitant]
     Indication: HIATUS HERNIA
     Dosage: 20 mg, daily
  7. XANAX [Concomitant]
     Dosage: 0.5 mg, daily
  8. ZOCOR [Concomitant]
     Dosage: 80 mg, daily

REACTIONS (14)
  - Neoplasm [Unknown]
  - Lymphoedema [Unknown]
  - Pain [Unknown]
  - Dysphonia [Unknown]
  - Somnolence [Recovered/Resolved]
  - Fatigue [Recovered/Resolved]
  - Feeling abnormal [Recovered/Resolved]
  - Anxiety [Recovered/Resolved]
  - Weight increased [Unknown]
  - Disturbance in attention [Unknown]
  - Frustration [Unknown]
  - Upper-airway cough syndrome [Unknown]
  - Activities of daily living impaired [Unknown]
  - Feeling drunk [Recovering/Resolving]
